FAERS Safety Report 4716631-5 (Version None)
Quarter: 2005Q3

REPORT INFORMATION
  Report Type: 
  Country: None (occurrence: None)
  Receive Date: 20050714
  Receipt Date: 20050706
  Transmission Date: 20060218
  Serious: Yes (Hospitalization)
  Sender: FDA-Public Use
  Company Number: ZICO001217

PATIENT
  Age: 28 Year
  Sex: Female
  Weight: 95 kg

DRUGS (6)
  1. PRIALT [Suspect]
     Indication: CANCER PAIN
     Dosage: 1.2 MCG/DAY INTRATHECAL
     Route: 037
     Dates: start: 20050502, end: 20050506
  2. MORPHINE (MORPHINE HYDROCHLORIDE) [Concomitant]
  3. NYSTATIN POWDER (NYSTATIN POWER) [Concomitant]
  4. VANCOMYCIN [Concomitant]
  5. LASIX [Concomitant]
  6. PRIMAXIN [Concomitant]

REACTIONS (3)
  - LOSS OF CONSCIOUSNESS [None]
  - SOMNOLENCE [None]
  - VENTRICULOPERITONEAL SHUNT MALFUNCTION [None]
